FAERS Safety Report 4349948-7 (Version None)
Quarter: 2004Q2

REPORT INFORMATION
  Report Type: 
  Country: None (occurrence: None)
  Receive Date: 20040426
  Receipt Date: 20040420
  Transmission Date: 20050107
  Serious: Yes (Other)
  Sender: FDA-Public Use
  Company Number: US-JNJFOC-20040404162

PATIENT
  Age: 24 Year
  Sex: Female
  Weight: 60.782 kg

DRUGS (2)
  1. ORTHO EVRA [Suspect]
     Indication: CONTRACEPTION
     Dosage: 1 DOSE(S), 3 IN  4 WEEK, TRANSDERMAL
     Route: 062
     Dates: start: 20021114, end: 20030325
  2. DILANTIN (PHENYTOIN SODIUM) UNSPECIFIED [Concomitant]

REACTIONS (4)
  - CONVULSION [None]
  - DRUG EXPOSURE DURING PREGNANCY [None]
  - PREGNANCY [None]
  - TRANSDERMAL CONTRACEPTION [None]
